FAERS Safety Report 4293664-7 (Version None)
Quarter: 2004Q1

REPORT INFORMATION
  Report Type: 
  Country: None (occurrence: None)
  Receive Date: 20040212
  Receipt Date: 20040204
  Transmission Date: 20041129
  Serious: Yes (Hospitalization)
  Sender: FDA-Public Use
  Company Number: CA-BRISTOL-MYERS SQUIBB COMPANY-12495446

PATIENT
  Age: 68 Year
  Sex: Female
  Weight: 55 kg

DRUGS (6)
  1. CISPLATIN [Suspect]
     Indication: NON-SMALL CELL LUNG CANCER
     Route: 042
     Dates: start: 20031127, end: 20031127
  2. PEMETREXED DISODIUM [Suspect]
     Indication: NON-SMALL CELL LUNG CANCER
     Dates: start: 20031120, end: 20031120
  3. GEMCITABINE [Suspect]
     Indication: NON-SMALL CELL LUNG CANCER
     Dosage: DAYS 1 AND 8
     Route: 042
     Dates: start: 20031127, end: 20031127
  4. ZOFRAN [Suspect]
     Indication: PREMEDICATION
     Dates: start: 20031127, end: 20031130
  5. AMITRIPTYLINE [Concomitant]
     Indication: MUSCLE CRAMP
     Dates: start: 20010101
  6. DECADRON [Concomitant]
     Indication: PREMEDICATION
     Dates: start: 20031127, end: 20031130

REACTIONS (2)
  - GASTRITIS [None]
  - ILEUS [None]
